FAERS Safety Report 4878503-5 (Version None)
Quarter: 2006Q1

REPORT INFORMATION
  Report Type: 
  Country: None (occurrence: None)
  Receive Date: 20060110
  Receipt Date: 20060110
  Transmission Date: 20060701
  Serious: Yes (Hospitalization)
  Sender: FDA-Public Use
  Company Number: None

PATIENT
  Sex: Female
  Weight: 101 kg

DRUGS (12)
  1. CISPLATIN [Suspect]
     Indication: NEUROENDOCRINE TUMOUR
     Dosage: 25 IV
     Route: 042
     Dates: start: 20050621, end: 20051228
  2. IRINOTECAN HCL [Suspect]
     Indication: NEUROENDOCRINE TUMOUR
     Dosage: 55.2 IV
     Route: 042
     Dates: start: 20050621, end: 20051228
  3. CAPECITABINE (MG/M2) D1-14 OF 21 DAY CYCLE [Suspect]
     Indication: NEUROENDOCRINE TUMOUR
     Dosage: 1400 ORAL
     Route: 048
     Dates: start: 20050621, end: 20050830
  4. ZOFRAN [Concomitant]
  5. ZEBETA [Concomitant]
  6. XELODA [Concomitant]
  7. PROCTOFOAM [Concomitant]
  8. LOMOTIL [Concomitant]
  9. DILTIA XT [Concomitant]
  10. DECADRON [Concomitant]
  11. COMPAZINE [Concomitant]
  12. ATIVAN [Concomitant]

REACTIONS (8)
  - CATHETER RELATED COMPLICATION [None]
  - DIARRHOEA [None]
  - MEDIASTINAL DISORDER [None]
  - NAUSEA [None]
  - OEDEMA PERIPHERAL [None]
  - SUPERIOR VENA CAVAL OCCLUSION [None]
  - SWELLING FACE [None]
  - VOMITING [None]
